FAERS Safety Report 18676002 (Version 1)
Quarter: 2020Q4

REPORT INFORMATION
  Report Type: Spontaneous
  Country: US (occurrence: US)
  Receive Date: 20201228
  Receipt Date: 20201228
  Transmission Date: 20210114
  Serious: Yes (Hospitalization)
  Sender: FDA-Public Use
  Company Number: None

PATIENT
  Age: 64 Year
  Sex: Male
  Weight: 85 kg

DRUGS (1)
  1. BAMLANIVIMAB 700MG [Suspect]
     Active Substance: BAMLANIVIMAB
     Indication: SARS-COV-2 TEST POSITIVE
     Dosage: ?          OTHER ROUTE:IVPB?
     Dates: start: 20201224, end: 20201224

REACTIONS (4)
  - Cough [None]
  - Dyspnoea [None]
  - Troponin increased [None]
  - Fatigue [None]

NARRATIVE: CASE EVENT DATE: 20201225
